FAERS Safety Report 16417148 (Version 1)
Quarter: 2019Q2

REPORT INFORMATION
  Report Type: Report from Study
  Country: MX (occurrence: MX)
  Receive Date: 20190611
  Receipt Date: 20190611
  Transmission Date: 20190711
  Serious: Yes (Hospitalization)
  Sender: FDA-Public Use
  Company Number: PHHY2019MX134035

PATIENT
  Sex: Female
  Weight: 58 kg

DRUGS (3)
  1. ENTRESTO [Suspect]
     Active Substance: SACUBITRIL\VALSARTAN
     Dosage: 2 DF, BID
     Route: 048
  2. METOPROLOL. [Concomitant]
     Active Substance: METOPROLOL
     Indication: PRODUCT USED FOR UNKNOWN INDICATION
     Dosage: 0.5 DF, BID
     Route: 048
  3. ENTRESTO [Suspect]
     Active Substance: SACUBITRIL\VALSARTAN
     Indication: CARDIAC FAILURE
     Dosage: 0.5 DF (50 MG), BID
     Route: 048

REACTIONS (8)
  - Product prescribing error [Unknown]
  - Thrombosis [Unknown]
  - Visual impairment [Unknown]
  - Memory impairment [Unknown]
  - Gait disturbance [Unknown]
  - Weight decreased [Unknown]
  - Endocarditis [Unknown]
  - Wrong technique in product usage process [Unknown]
